FAERS Safety Report 7709572-2 (Version None)
Quarter: 2011Q3

REPORT INFORMATION
  Report Type: 
  Country: None (occurrence: None)
  Receive Date: 20110819
  Receipt Date: 20110805
  Transmission Date: 20111222
  Serious: Yes (Hospitalization)
  Sender: FDA-Public Use
  Company Number: TPA2011A04834

PATIENT
  Age: 82 Year
  Sex: Female

DRUGS (9)
  1. CLOPIDOGREL BESYLATE (CLOPIDOGREL BESYLATE) [Concomitant]
  2. ADENURIC (FEBUXOSTAT) [Suspect]
     Indication: HYPERURICAEMIA
     Dosage: 80 MG, 1 IN 1 D, ORAL
     Route: 048
     Dates: start: 20110402, end: 20110512
  3. OMEPRAZOLE [Concomitant]
  4. LASIX [Concomitant]
  5. SPIRIVA [Concomitant]
  6. ATORVASTATIN CALCIUM [Concomitant]
  7. DISCOTRINE (GLYCERYL TRINITRATE) [Concomitant]
  8. SYMBICORT [Concomitant]
  9. CARDENSIE (BISOPROLOL FUMARATE) [Concomitant]

REACTIONS (4)
  - DIZZINESS [None]
  - DYSGEUSIA [None]
  - PALPITATIONS [None]
  - RASH [None]
